FAERS Safety Report 26205178 (Version 1)
Quarter: 2025Q4

REPORT INFORMATION
  Report Type: Spontaneous
  Country: US (occurrence: US)
  Receive Date: 20251228
  Receipt Date: 20251228
  Transmission Date: 20260117
  Serious: No
  Sender: SANOFI AVENTIS
  Company Number: US-SA-2025SA381996

PATIENT
  Sex: Female
  Weight: 27.27 kg

DRUGS (1)
  1. DUPIXENT [Suspect]
     Active Substance: DUPILUMAB
     Indication: Dermatitis atopic
     Route: 058

REACTIONS (1)
  - Rash [Unknown]

NARRATIVE: CASE EVENT DATE: 20250101
